FAERS Safety Report 21301661 (Version 1)
Quarter: 2022Q3

REPORT INFORMATION
  Report Type: Spontaneous
  Country: US (occurrence: None)
  Receive Date: 20220906
  Receipt Date: 20220906
  Transmission Date: 20221026
  Serious: Yes (Other)
  Sender: FDA-Public Use
  Company Number: None

PATIENT
  Age: 40 Year
  Sex: Female
  Weight: 74.25 kg

DRUGS (1)
  1. ENOXAPARIN [Suspect]
     Active Substance: ENOXAPARIN
     Indication: Thrombosis prophylaxis
     Dosage: FREQUENCY : DAILY;?
     Route: 058
     Dates: start: 20220605, end: 20220608

REACTIONS (3)
  - Contusion [None]
  - Failed in vitro fertilisation [None]
  - Therapeutic product effect decreased [None]

NARRATIVE: CASE EVENT DATE: 20220607
